FAERS Safety Report 20069203 (Version 3)
Quarter: 2025Q3

REPORT INFORMATION
  Report Type: Spontaneous
  Country: EU (occurrence: EU)
  Receive Date: 20211115
  Receipt Date: 20250723
  Transmission Date: 20251021
  Serious: Yes (Other)
  Sender: MYLAN
  Company Number: EU-AMAROX PHARMA-AMR2021NL01571

PATIENT

DRUGS (2)
  1. IMATINIB [Suspect]
     Active Substance: IMATINIB
     Indication: COVID-19
     Dosage: 800 MILLIGRAM, QD (LOADING DOSE OF 800 MG ON DAY-0)
  2. IMATINIB [Suspect]
     Active Substance: IMATINIB
     Dosage: 400 MILLIGRAM, QD (400 MG DAILY ON DAYS 1-9)

REACTIONS (3)
  - Haemorrhagic stroke [Unknown]
  - Product use in unapproved indication [Unknown]
  - Off label use [Unknown]
